FAERS Safety Report 5201395-1 (Version None)
Quarter: 2007Q1

REPORT INFORMATION
  Report Type: 
  Country: None (occurrence: None)
  Receive Date: 20070108
  Receipt Date: 20070102
  Transmission Date: 20070707
  Serious: Yes (Other)
  Sender: FDA-Public Use
  Company Number: NL-ABBOTT-07P-114-0354806-00

PATIENT
  Age: 65 Year
  Sex: Female

DRUGS (1)
  1. SEVOFLURANE [Suspect]
     Indication: ANAESTHESIA
     Route: 065

REACTIONS (2)
  - TORSADE DE POINTES [None]
  - VENTRICULAR FIBRILLATION [None]
